FAERS Safety Report 5379328-7 (Version None)
Quarter: 2007Q3

REPORT INFORMATION
  Report Type: 
  Country: None (occurrence: None)
  Receive Date: 20070705
  Receipt Date: 20070628
  Transmission Date: 20080115
  Serious: Yes (Hospitalization)
  Sender: FDA-Public Use
  Company Number: TR-ABBOTT-07P-161-0372933-00

PATIENT
  Sex: Male
  Weight: 117 kg

DRUGS (1)
  1. TARKA FORTE [Suspect]
     Indication: HYPERTENSION
     Route: 048
     Dates: end: 20070628

REACTIONS (1)
  - ATRIOVENTRICULAR BLOCK [None]
